FAERS Safety Report 11425676 (Version 1)
Quarter: 2015Q3

REPORT INFORMATION
  Report Type: Spontaneous
  Country: US (occurrence: US)
  Receive Date: 20150821
  Receipt Date: 20150821
  Transmission Date: 20151125
  Serious: No
  Sender: FDA-Public Use
  Company Number: US-ELI_LILLY_AND_COMPANY-US201303009967

PATIENT
  Sex: Male

DRUGS (7)
  1. METFORMIN [Concomitant]
     Active Substance: METFORMIN HYDROCHLORIDE
  2. ATENOLOL. [Concomitant]
     Active Substance: ATENOLOL
  3. LIPITOR [Concomitant]
     Active Substance: ATORVASTATIN CALCIUM
  4. LISINOPRIL. [Concomitant]
     Active Substance: LISINOPRIL
  5. CIALIS [Suspect]
     Active Substance: TADALAFIL
     Indication: ERECTILE DYSFUNCTION
     Dosage: 5 MG, QD
  6. GLIPIZIDE. [Concomitant]
     Active Substance: GLIPIZIDE
  7. HYDROCHLOROTHIAZIDE. [Concomitant]
     Active Substance: HYDROCHLOROTHIAZIDE

REACTIONS (10)
  - Chest pain [Unknown]
  - Pain [Unknown]
  - Blood pressure increased [Unknown]
  - Abdominal distension [Unknown]
  - Asthenia [Unknown]
  - Dizziness [Unknown]
  - Dyspepsia [Unknown]
  - Nausea [Unknown]
  - Headache [Unknown]
  - Peripheral swelling [Unknown]
